FAERS Safety Report 4379338-2 (Version None)
Quarter: 2004Q2

REPORT INFORMATION
  Report Type: 
  Country: None (occurrence: None)
  Receive Date: 20040610
  Receipt Date: 20040527
  Transmission Date: 20050107
  Serious: Yes (Hospitalization)
  Sender: FDA-Public Use
  Company Number: DE-SHR-03-017554

PATIENT
  Age: 36 Year
  Sex: Female
  Weight: 62 kg

DRUGS (2)
  1. MIRENA [Suspect]
     Indication: CONTRACEPTION
     Dosage: 20 MG/D, CONT, INTRA-UTERINE
     Route: 015
     Dates: start: 20030310, end: 20031213
  2. LEVOTHYROXINE SODIUM [Concomitant]

REACTIONS (14)
  - BLEPHARITIS [None]
  - CONJUNCTIVITIS ALLERGIC [None]
  - DERMATITIS ATOPIC [None]
  - DERMATITIS PSORIASIFORM [None]
  - ECZEMA [None]
  - EYE REDNESS [None]
  - EYE SWELLING [None]
  - HYPERSENSITIVITY [None]
  - IMPAIRED WORK ABILITY [None]
  - MYCOTIC ALLERGY [None]
  - NAIL DYSTROPHY [None]
  - PITYRIASIS [None]
  - RHINITIS ALLERGIC [None]
  - SKIN DEPIGMENTATION [None]
